FAERS Safety Report 13383248 (Version 9)
Quarter: 2018Q2

REPORT INFORMATION
  Report Type: Report from Study
  Country: MY (occurrence: MY)
  Receive Date: 20170329
  Receipt Date: 20180504
  Transmission Date: 20180711
  Serious: Yes (Death)
  Sender: FDA-Public Use
  Company Number: MY-ROCHE-1912172

PATIENT
  Age: 61 Year
  Sex: Male
  Weight: 59.3 kg

DRUGS (5)
  1. CARBOPLATIN. [Suspect]
     Active Substance: CARBOPLATIN
     Indication: NON-SMALL CELL LUNG CANCER STAGE IV
     Dosage: DOSE PER PROTOCOL AT AUC=6 ?THE DATE OF THE MOST RECENT DOSE OF CARBOPLATIN 834 MG PRIOR TO SAE ONSE
     Route: 042
     Dates: start: 20170324
  2. VITAMIN B12 [Concomitant]
     Active Substance: CYANOCOBALAMIN
     Indication: PREMEDICATION
     Route: 065
     Dates: start: 20170316, end: 20170316
  3. PEMETREXED. [Suspect]
     Active Substance: PEMETREXED
     Indication: NON-SMALL CELL LUNG CANCER STAGE IV
     Dosage: THE DATE OF THE MOST RECENT DOSE OF PEMETREXED 815 MG PRIOR TO SAE ONSET WAS ADMINISTERED ON 24/MAR/
     Route: 042
     Dates: start: 20170324
  4. DEXAMETHASONE. [Concomitant]
     Active Substance: DEXAMETHASONE
     Indication: PREMEDICATION
     Route: 065
     Dates: start: 20170323, end: 20170325
  5. ATEZOLIZUMAB. [Suspect]
     Active Substance: ATEZOLIZUMAB
     Indication: NON-SMALL CELL LUNG CANCER STAGE IV
     Dosage: THE DATE OF THE MOST RECENT DOSE OF ATEZOLIZUMAB1200MG  PRIOR TO SAE ONSET WAS ADMINISTERED ON 24/MA
     Route: 042
     Dates: start: 20170324

REACTIONS (1)
  - Seizure [Fatal]

NARRATIVE: CASE EVENT DATE: 20170326
